FAERS Safety Report 7216956-8 (Version None)
Quarter: 2011Q1

REPORT INFORMATION
  Report Type: 
  Country: None (occurrence: None)
  Receive Date: 20110110
  Receipt Date: 20101230
  Transmission Date: 20110831
  Serious: Yes (Hospitalization, Other)
  Sender: FDA-Public Use
  Company Number: US-TEVA-256988USA

PATIENT
  Sex: Male

DRUGS (8)
  1. MACROGOL [Concomitant]
     Indication: CONSTIPATION
     Route: 048
  2. HYDROCODONE W/HOMATROPINE [Concomitant]
     Indication: PAIN
     Dosage: 1.5/5
  3. CISPLATIN [Suspect]
     Route: 042
     Dates: end: 20101101
  4. DOCUSATE SODIUM [Concomitant]
     Indication: CONSTIPATION
     Dosage: 2X/DAY AS NEEDED
  5. SENNA ALEXANDRINA [Concomitant]
     Indication: CONSTIPATION
     Route: 048
  6. ONDANSETRON [Concomitant]
     Indication: NAUSEA
     Route: 048
  7. FLUOROURACIL [Suspect]
     Indication: HEAD AND NECK CANCER
     Route: 042
     Dates: start: 20101101, end: 20101101
  8. CETUXIMAB [Suspect]
     Indication: HEAD AND NECK CANCER
     Route: 042
     Dates: start: 20101108, end: 20101108

REACTIONS (2)
  - BLOOD CREATININE INCREASED [None]
  - MUCOSAL INFLAMMATION [None]
